FAERS Safety Report 5806346-4 (Version None)
Quarter: 2008Q3

REPORT INFORMATION
  Report Type: 
  Country: None (occurrence: None)
  Receive Date: 20080710
  Receipt Date: 20080702
  Transmission Date: 20090109
  Serious: Yes (Life-Threatening)
  Sender: FDA-Public Use
  Company Number: AU-ASTRAZENECA-2008AP04070

PATIENT
  Age: 75 Year
  Sex: Male

DRUGS (3)
  1. CRESTOR [Suspect]
     Indication: LIPIDS ABNORMAL
     Route: 048
  2. SIMVASTATIN [Suspect]
  3. GEMFIBROZIL [Concomitant]

REACTIONS (2)
  - LIVER FUNCTION TEST ABNORMAL [None]
  - RHABDOMYOLYSIS [None]
